FAERS Safety Report 9052423 (Version 1)
Quarter: 2013Q1

REPORT INFORMATION
  Report Type: Spontaneous
  Country: JP (occurrence: JP)
  Receive Date: 20130207
  Receipt Date: 20130207
  Transmission Date: 20140127
  Serious: No
  Sender: FDA-Public Use
  Company Number: JP-JNJFOC-20130201312

PATIENT
  Sex: 0

DRUGS (3)
  1. DUROTEP MT [Suspect]
     Indication: CANCER PAIN
     Dosage: APPLIED HALF THE PATCH(1.05MG)
     Route: 062
  2. DUROTEP MT [Suspect]
     Indication: CANCER PAIN
     Route: 062
  3. OPSO [Concomitant]
     Indication: CANCER PAIN
     Route: 065

REACTIONS (2)
  - Nausea [Unknown]
  - Drug administration error [Unknown]
